FAERS Safety Report 13322964 (Version 1)
Quarter: 2017Q1

REPORT INFORMATION
  Report Type: Spontaneous
  Country: US (occurrence: US)
  Receive Date: 20170310
  Receipt Date: 20170310
  Transmission Date: 20170428
  Serious: Yes (Other)
  Sender: FDA-Public Use
  Company Number: US-ELI_LILLY_AND_COMPANY-US201703002467

PATIENT
  Age: 76 Year
  Sex: Female
  Weight: 114 kg

DRUGS (5)
  1. METFORMIN [Suspect]
     Active Substance: METFORMIN HYDROCHLORIDE
     Indication: TYPE 2 DIABETES MELLITUS
     Dosage: 500 MG, BID
     Route: 048
  2. HUMALOG [Suspect]
     Active Substance: INSULIN LISPRO
     Indication: TYPE 2 DIABETES MELLITUS
     Dosage: UNK, PRN
     Route: 058
  3. TRESIBA [Suspect]
     Active Substance: INSULIN DEGLUDEC
     Indication: TYPE 2 DIABETES MELLITUS
     Dosage: UNK, UNKNOWN
     Route: 058
  4. LISINOPRIL. [Suspect]
     Active Substance: LISINOPRIL
     Indication: HYPERTENSION
     Dosage: UNK, UNKNOWN
     Route: 048
  5. FUROSEMIDE. [Suspect]
     Active Substance: FUROSEMIDE
     Indication: HYPERTENSION
     Dosage: UNK, UNKNOWN
     Route: 048

REACTIONS (2)
  - Hypoglycaemia [Recovered/Resolved]
  - Hyperglycaemia [Not Recovered/Not Resolved]

NARRATIVE: CASE EVENT DATE: 20161228
